FAERS Safety Report 21546927 (Version 1)
Quarter: 2022Q4

REPORT INFORMATION
  Report Type: Spontaneous
  Country: GB (occurrence: GB)
  Receive Date: 20221103
  Receipt Date: 20221103
  Transmission Date: 20230113
  Serious: Yes (Hospitalization, Other)
  Sender: FDA-Public Use
  Company Number: GB-MHRA-MED-202210241351175510-GPMNS

PATIENT
  Age: 9 Year
  Sex: Male

DRUGS (1)
  1. OVEX [Suspect]
     Active Substance: MEBENDAZOLE
     Indication: Enterobiasis
     Dosage: 100 MG; ;
     Route: 048
     Dates: start: 20221021

REACTIONS (2)
  - Seizure [Recovered/Resolved]
  - Medication error [Unknown]

NARRATIVE: CASE EVENT DATE: 20221022
